FAERS Safety Report 11277150 (Version 1)
Quarter: 2015Q3

REPORT INFORMATION
  Report Type: Report from Study
  Country: GB (occurrence: GB)
  Receive Date: 20150716
  Receipt Date: 20150716
  Transmission Date: 20151125
  Serious: Yes (Other)
  Sender: FDA-Public Use
  Company Number: GB-PFIZER INC-2015229073

PATIENT
  Age: 27 Year
  Sex: Female

DRUGS (12)
  1. CARBAMAZEPINE. [Concomitant]
     Active Substance: CARBAMAZEPINE
     Indication: MYOCLONUS
     Dosage: UNK
  2. PHENYTOIN. [Suspect]
     Active Substance: PHENYTOIN
     Indication: GENERALISED TONIC-CLONIC SEIZURE
  3. CARBAMAZEPINE. [Concomitant]
     Active Substance: CARBAMAZEPINE
     Indication: PARTIAL SEIZURES
  4. SODIUM VALPROATE [Concomitant]
     Active Substance: VALPROATE SODIUM
     Indication: PARTIAL SEIZURES
  5. PHENYTOIN. [Suspect]
     Active Substance: PHENYTOIN
     Indication: MYOCLONUS
     Dosage: 300 MG, UNK
  6. PHENYTOIN. [Suspect]
     Active Substance: PHENYTOIN
     Indication: PARTIAL SEIZURES
  7. PHENOBARBITONE [Concomitant]
     Active Substance: PHENOBARBITAL
     Indication: MYOCLONUS
     Dosage: UNK
  8. PHENOBARBITONE [Concomitant]
     Active Substance: PHENOBARBITAL
     Indication: PARTIAL SEIZURES
  9. SODIUM VALPROATE [Concomitant]
     Active Substance: VALPROATE SODIUM
     Indication: MYOCLONUS
     Dosage: UNK
  10. SODIUM VALPROATE [Concomitant]
     Active Substance: VALPROATE SODIUM
     Indication: GENERALISED TONIC-CLONIC SEIZURE
  11. PHENOBARBITONE [Concomitant]
     Active Substance: PHENOBARBITAL
     Indication: GENERALISED TONIC-CLONIC SEIZURE
  12. CARBAMAZEPINE. [Concomitant]
     Active Substance: CARBAMAZEPINE
     Indication: GENERALISED TONIC-CLONIC SEIZURE

REACTIONS (1)
  - Cerebral atrophy [Unknown]
